FAERS Safety Report 17057798 (Version 1)
Quarter: 2019Q4

REPORT INFORMATION
  Report Type: Spontaneous
  Country: US (occurrence: US)
  Receive Date: 20191022
  Receipt Date: 20191022
  Transmission Date: 20200122
  Serious: Yes (Hospitalization)
  Sender: FDA-Public Use
  Company Number: None

PATIENT
  Age: 76 Year
  Sex: Male

DRUGS (1)
  1. CYTARABINE. [Suspect]
     Active Substance: CYTARABINE
     Indication: ACUTE MYELOID LEUKAEMIA
     Dosage: ?          OTHER FREQUENCY:OTHER;?
     Route: 042
     Dates: start: 20190923, end: 20190926

REACTIONS (8)
  - Dyspnoea [None]
  - Mouth ulceration [None]
  - Liver abscess [None]
  - Diarrhoea [None]
  - Febrile neutropenia [None]
  - Fusobacterium infection [None]
  - Cough [None]
  - Blood culture positive [None]

NARRATIVE: CASE EVENT DATE: 20190926
